FAERS Safety Report 9841510 (Version 2)
Quarter: 2014Q1

REPORT INFORMATION
  Report Type: Report from Study
  Country: US (occurrence: US)
  Receive Date: 20140124
  Receipt Date: 20140124
  Transmission Date: 20141002
  Serious: Yes (Hospitalization, Other)
  Sender: FDA-Public Use
  Company Number: US-ABBVIE-11P-163-0863594-00

PATIENT
  Sex: Female
  Weight: 108.96 kg

DRUGS (12)
  1. HUMIRA [Suspect]
     Indication: PSORIATIC ARTHROPATHY
     Route: 058
     Dates: start: 200609, end: 2007
  2. HUMIRA [Suspect]
     Indication: PSORIASIS
     Route: 058
     Dates: start: 200806, end: 201307
  3. HUMIRA [Suspect]
     Route: 058
     Dates: start: 201307, end: 201309
  4. TENORMIN [Concomitant]
     Indication: HYPERTENSION
  5. ENALAPRIL [Concomitant]
     Indication: FLUID RETENTION
     Dosage: 10/25 ONCE DAILY
  6. UNKNOWN MEDICATION [Concomitant]
     Indication: PAIN
  7. GLUCOPHAGE [Concomitant]
     Indication: DIABETES MELLITUS
  8. TOVIAZ [Concomitant]
  9. WELLBUTRIN [Concomitant]
     Dosage: ER
     Dates: start: 2010
  10. IMDUR [Concomitant]
     Indication: GASTROINTESTINAL PAIN
  11. PROTONIX [Concomitant]
     Indication: GASTROOESOPHAGEAL REFLUX DISEASE
  12. DITROPAN [Concomitant]
     Indication: HYPERTONIC BLADDER

REACTIONS (20)
  - Coronary artery occlusion [Recovered/Resolved]
  - Chest pain [Recovered/Resolved]
  - Non-cardiac chest pain [Recovered/Resolved]
  - Injection site pain [Not Recovered/Not Resolved]
  - Fall [Recovered/Resolved]
  - Skin discolouration [Recovered/Resolved]
  - Arthralgia [Recovering/Resolving]
  - Menopausal depression [Recovering/Resolving]
  - Gait disturbance [Recovered/Resolved]
  - Dysstasia [Recovered/Resolved]
  - Pain [Recovered/Resolved]
  - Gallbladder disorder [Recovered/Resolved]
  - Depression [Recovered/Resolved]
  - Cystitis interstitial [Not Recovered/Not Resolved]
  - Urinary tract infection [Recovered/Resolved]
  - Cartilage atrophy [Recovered/Resolved]
  - Arthritis [Not Recovered/Not Resolved]
  - Death of relative [Unknown]
  - Cartilage atrophy [Not Recovered/Not Resolved]
  - Drug ineffective [Recovered/Resolved]
